FAERS Safety Report 7135387-2 (Version None)
Quarter: 2010Q4

REPORT INFORMATION
  Report Type: 
  Country: None (occurrence: None)
  Receive Date: 20101203
  Receipt Date: 20101112
  Transmission Date: 20110411
  Serious: Yes (Other)
  Sender: FDA-Public Use
  Company Number: US-ASTRAZENECA-2010SE44821

PATIENT
  Sex: Male
  Weight: 74.8 kg

DRUGS (3)
  1. NEXIUM [Suspect]
     Route: 048
  2. PLAVIX [Suspect]
     Route: 065
  3. ASPIRIN [Suspect]
     Route: 065

REACTIONS (1)
  - STENT PLACEMENT [None]
